FAERS Safety Report 13586426 (Version 6)
Quarter: 2018Q2

REPORT INFORMATION
  Report Type: Spontaneous
  Country: US (occurrence: US)
  Receive Date: 20170526
  Receipt Date: 20180516
  Transmission Date: 20180711
  Serious: Yes (Hospitalization, Other)
  Sender: FDA-Public Use
  Company Number: US-009507513-1705USA012970

PATIENT
  Sex: Female
  Weight: 88.44 kg

DRUGS (2)
  1. NUVARING [Suspect]
     Active Substance: ETHINYL ESTRADIOL\ETONOGESTREL
     Indication: HEADACHE
  2. NUVARING [Suspect]
     Active Substance: ETHINYL ESTRADIOL\ETONOGESTREL
     Indication: CONTRACEPTION
     Dosage: 1 RING FOR 3 WEEKS WITH 1 WEEK OFF
     Route: 067
     Dates: start: 2000, end: 20140610

REACTIONS (24)
  - Pulmonary embolism [Unknown]
  - Dysmenorrhoea [Unknown]
  - Panic attack [Recovering/Resolving]
  - Fatigue [Unknown]
  - Swelling [Recovered/Resolved]
  - Hypothyroidism [Unknown]
  - Endocrine disorder [Unknown]
  - Metabolic syndrome [Unknown]
  - Vitamin D deficiency [Unknown]
  - Obesity [Not Recovered/Not Resolved]
  - Hypertension [Not Recovered/Not Resolved]
  - Blood homocysteine abnormal [Unknown]
  - Off label use [Unknown]
  - Insomnia [Unknown]
  - Peripheral swelling [Unknown]
  - Urinary tract infection [Unknown]
  - Anxiety [Recovering/Resolving]
  - Temperature intolerance [Unknown]
  - Menstruation irregular [Unknown]
  - Disturbance in attention [Unknown]
  - Blood pressure inadequately controlled [Unknown]
  - Vitamin B12 deficiency [Unknown]
  - Adrenal insufficiency [Unknown]
  - Depression [Unknown]

NARRATIVE: CASE EVENT DATE: 2000
